FAERS Safety Report 18004990 (Version 1)
Quarter: 2020Q3

REPORT INFORMATION
  Report Type: Spontaneous
  Country: US (occurrence: US)
  Receive Date: 20200709
  Receipt Date: 20200709
  Transmission Date: 20201103
  Serious: Yes (Other)
  Sender: FDA-Public Use
  Company Number: None

PATIENT
  Age: 77 Year
  Sex: Female
  Weight: 82.2 kg

DRUGS (9)
  1. DEXAMETHASONE 6MG IV DAILY [Concomitant]
     Dates: start: 20200704, end: 20200708
  2. REMDESIVIR. [Suspect]
     Active Substance: REMDESIVIR
     Indication: COVID-19
     Route: 040
     Dates: start: 20200706, end: 20200708
  3. BUDESONIDE 0.5MG NEBULIZED BID [Concomitant]
     Dates: start: 20200705, end: 20200708
  4. CEFTRIAXONE 2G IV DAILY [Concomitant]
     Dates: start: 20200706, end: 20200708
  5. PANTOPRAZOLE 40MG ORAL DAILY [Concomitant]
     Dates: start: 20200706, end: 20200708
  6. AZITHROMYCIN 500MG IV DAILY [Concomitant]
     Dates: start: 20200704, end: 20200708
  7. SENNA 8.6MG DAILY [Concomitant]
     Dates: start: 20200705, end: 20200706
  8. CEFEPIME 2MG IV Q12H [Concomitant]
     Dates: start: 20200704, end: 20200705
  9. DOCUSATE 100MG ORAL BID [Concomitant]
     Dates: start: 20200704, end: 20200708

REACTIONS (2)
  - Cardio-respiratory arrest [None]
  - Cardiac arrest [None]

NARRATIVE: CASE EVENT DATE: 20200708
